FAERS Safety Report 10198610 (Version 1)
Quarter: 2014Q2

REPORT INFORMATION
  Report Type: Spontaneous
  Country: US (occurrence: US)
  Receive Date: 20140527
  Receipt Date: 20140527
  Transmission Date: 20141212
  Serious: No
  Sender: FDA-Public Use
  Company Number: US-NOVEN-13US007950

PATIENT
  Age: 36 Year
  Sex: Male

DRUGS (2)
  1. DAYTRANA [Suspect]
     Indication: NARCOLEPSY
     Dosage: 30 MG, QD
     Route: 062
     Dates: start: 20131010
  2. DAYTRANA [Suspect]
     Dosage: 30 MG, QD
     Route: 062
     Dates: start: 201210, end: 201210

REACTIONS (8)
  - Application site exfoliation [Recovered/Resolved]
  - Off label use [Not Recovered/Not Resolved]
  - Application site erythema [Recovered/Resolved]
  - Application site pruritus [Recovered/Resolved]
  - Application site pain [Recovered/Resolved]
  - Application site erythema [Not Recovered/Not Resolved]
  - Application site pruritus [Not Recovered/Not Resolved]
  - Drug prescribing error [Not Recovered/Not Resolved]
